FAERS Safety Report 23942349 (Version 2)
Quarter: 2025Q2

REPORT INFORMATION
  Report Type: Spontaneous
  Country: US (occurrence: US)
  Receive Date: 20240605
  Receipt Date: 20250624
  Transmission Date: 20250717
  Serious: Yes (Other)
  Sender: REGENERON
  Company Number: US-REGENERON PHARMACEUTICALS, INC.-2024-034693

PATIENT
  Sex: Female

DRUGS (3)
  1. EYLEA HD [Suspect]
     Active Substance: AFLIBERCEPT
     Indication: Diabetic retinopathy
  2. EYLEA HD [Suspect]
     Active Substance: AFLIBERCEPT
     Indication: Diabetic retinal oedema
  3. LUCENTIS [Concomitant]
     Active Substance: RANIBIZUMAB
     Indication: Macular oedema

REACTIONS (1)
  - Non-infectious endophthalmitis [Recovering/Resolving]

NARRATIVE: CASE EVENT DATE: 20240101
